FAERS Safety Report 9630928 (Version 1)
Quarter: 2013Q4

REPORT INFORMATION
  Report Type: Spontaneous
  Country: US (occurrence: US)
  Receive Date: 20131018
  Receipt Date: 20131018
  Transmission Date: 20140711
  Serious: Yes (Other)
  Sender: FDA-Public Use
  Company Number: US-PFIZER INC-2013298966

PATIENT
  Age: 86 Year
  Sex: Male
  Weight: 81 kg

DRUGS (2)
  1. PRISTIQ [Suspect]
     Indication: DEPRESSION
     Dosage: 50 MG, 1X/DAY
     Dates: start: 20121219
  2. WARFARIN [Concomitant]
     Indication: COAGULOPATHY
     Dosage: (TAKING 5MG ONE DAY AND 2.5MG ON THE OTHER DAY),1X/DAY

REACTIONS (2)
  - Lung disorder [Not Recovered/Not Resolved]
  - Cardiac valve disease [Not Recovered/Not Resolved]
